FAERS Safety Report 25644540 (Version 2)
Quarter: 2025Q4

REPORT INFORMATION
  Report Type: Spontaneous
  Country: US (occurrence: US)
  Receive Date: 20250805
  Receipt Date: 20251202
  Transmission Date: 20260117
  Serious: Yes (Other)
  Sender: ELI LILLY AND COMPANY
  Company Number: US-ELI_LILLY_AND_COMPANY-US202507024895

PATIENT
  Age: 46 Year
  Sex: Female

DRUGS (13)
  1. TRULICITY [Suspect]
     Active Substance: DULAGLUTIDE
     Indication: Type 2 diabetes mellitus
     Dosage: 0.75 MG, WEEKLY (1/W)
     Route: 065
     Dates: start: 20211031, end: 20230325
  2. OZEMPIC [Suspect]
     Active Substance: SEMAGLUTIDE
     Indication: Type 2 diabetes mellitus
     Dosage: 0.5 MG, WEEKLY (1/W)
     Route: 065
     Dates: start: 20201014, end: 20210318
  3. OZEMPIC [Suspect]
     Active Substance: SEMAGLUTIDE
     Dosage: UNK UNK, UNKNOWN
     Route: 065
     Dates: start: 202106, end: 202109
  4. OZEMPIC [Suspect]
     Active Substance: SEMAGLUTIDE
     Dosage: 0.25 MG, WEEKLY (1/W)
     Route: 065
     Dates: start: 20210331, end: 20211013
  5. METFORMIN [Concomitant]
     Active Substance: METFORMIN HYDROCHLORIDE
     Indication: Type 2 diabetes mellitus
     Dosage: UNK UNK, UNKNOWN
     Route: 065
     Dates: start: 20180425
  6. PIOGLITAZONE [Concomitant]
     Active Substance: PIOGLITAZONE
     Indication: Type 2 diabetes mellitus
     Dosage: UNK UNK, UNKNOWN
     Route: 065
     Dates: start: 20170125
  7. ROSUVASTATIN [Concomitant]
     Active Substance: ROSUVASTATIN
     Indication: Blood cholesterol increased
     Dosage: UNK UNK, UNKNOWN
     Route: 065
     Dates: start: 20220622
  8. PLAVIX [Concomitant]
     Active Substance: CLOPIDOGREL BISULFATE
     Indication: Anticoagulant therapy
     Dosage: UNK UNK, UNKNOWN
     Route: 065
     Dates: start: 20230822
  9. LISINOPRIL [Concomitant]
     Active Substance: LISINOPRIL
     Indication: Hypertension
     Dosage: UNK UNK, UNKNOWN
     Route: 065
     Dates: start: 20190127
  10. METOCLOPRAMIDE [Concomitant]
     Active Substance: METOCLOPRAMIDE
     Indication: Impaired gastric emptying
     Dosage: UNK UNK, UNKNOWN
     Route: 065
     Dates: start: 20230322, end: 20240403
  11. OMEPRAZOLE [Concomitant]
     Active Substance: OMEPRAZOLE
     Indication: Vomiting
     Dosage: UNK UNK, UNKNOWN
     Route: 065
     Dates: start: 20200722, end: 20240403
  12. ONDANSETRON [Concomitant]
     Active Substance: ONDANSETRON
     Indication: Nausea
     Dosage: UNK UNK, UNKNOWN
     Route: 065
     Dates: start: 20220404
  13. ONDANSETRON [Concomitant]
     Active Substance: ONDANSETRON
     Indication: Vomiting

REACTIONS (9)
  - Gastrointestinal pain [Unknown]
  - Constipation [Unknown]
  - Impaired gastric emptying [Recovered/Resolved]
  - Abdominal distension [Unknown]
  - Vomiting [Recovered/Resolved]
  - Nausea [Recovered/Resolved]
  - Abdominal pain upper [Recovered/Resolved]
  - Abdominal pain [Unknown]
  - Diarrhoea [Unknown]

NARRATIVE: CASE EVENT DATE: 20230323
